FAERS Safety Report 23501483 (Version 1)
Quarter: 2024Q1

REPORT INFORMATION
  Report Type: Other
  Country: PT (occurrence: PT)
  Receive Date: 20240208
  Receipt Date: 20240208
  Transmission Date: 20240409
  Serious: Yes (Other)
  Sender: FDA-Public Use
  Company Number: PT-ALVOGEN-2024092960

PATIENT
  Age: 60 Year
  Sex: Male

DRUGS (7)
  1. DAPSONE [Suspect]
     Active Substance: DAPSONE
     Indication: Lepromatous leprosy
     Dosage: AS A MDT THERAPY
  2. DAPSONE [Suspect]
     Active Substance: DAPSONE
     Indication: Lepromatous leprosy
     Dosage: LATER REINTRODUCED AT A LOWER DOSE, COMPLETED 24 MONTHS OF TRIPLE TREATMENT
  3. RIFAMPIN [Concomitant]
     Active Substance: RIFAMPIN
     Indication: Lepromatous leprosy
  4. RIFAMPIN [Concomitant]
     Active Substance: RIFAMPIN
     Indication: Lepromatous leprosy
     Dosage: NEW TREATMENT REGIMEN COMPRISING RIFAMPICIN, CLOFAZIMINE, AND MINOCYCLINE
  5. CLOFAZIMINE [Concomitant]
     Active Substance: CLOFAZIMINE
     Indication: Lepromatous leprosy
  6. CLOFAZIMINE [Concomitant]
     Active Substance: CLOFAZIMINE
     Indication: Lepromatous leprosy
     Dosage: NEW TREATMENT REGIMEN COMPRISING RIFAMPICIN, CLOFAZIMINE, AND MINOCYCLINE
  7. VALSARTAN [Concomitant]
     Active Substance: VALSARTAN
     Indication: Hypertension
     Dosage: DAILY

REACTIONS (1)
  - Haemolytic anaemia [Recovered/Resolved]
